FAERS Safety Report 6148046-X (Version None)
Quarter: 2009Q2

REPORT INFORMATION
  Report Type: 
  Country: None (occurrence: None)
  Receive Date: 20090408
  Receipt Date: 20090402
  Transmission Date: 20091009
  Serious: Yes (Other)
  Sender: FDA-Public Use
  Company Number: A0759378A

PATIENT
  Sex: Female
  Weight: 33 kg

DRUGS (4)
  1. ROSIGLITAZONE [Suspect]
     Dosage: 8MG PER DAY
     Route: 048
     Dates: start: 20071116, end: 20081020
  2. PLACEBO [Suspect]
     Route: 048
     Dates: start: 20081021, end: 20081128
  3. ARICEPT [Concomitant]
     Indication: DEMENTIA
     Route: 048
     Dates: start: 20060923, end: 20081128
  4. ASTHMA MEDICATION [Concomitant]

REACTIONS (2)
  - HYPONATRAEMIA [None]
  - MYOCARDIAL INFARCTION [None]
